FAERS Safety Report 5498500-9 (Version None)
Quarter: 2007Q4

REPORT INFORMATION
  Report Type: 
  Country: None (occurrence: None)
  Receive Date: 20071025
  Receipt Date: 20071025
  Transmission Date: 20080405
  Serious: Yes (Hospitalization)
  Sender: FDA-Public Use
  Company Number: None

PATIENT
  Sex: Male
  Weight: 81.7 kg

DRUGS (6)
  1. FLUDARABINE PHOSPHATE [Suspect]
     Indication: CHRONIC LYMPHOCYTIC LEUKAEMIA
     Dosage: 25MG/M2 IV DAYS 1-3 Q 4WKS X 6 MOS IV
     Route: 042
     Dates: start: 20060927
  2. FLUDARABINE PHOSPHATE [Suspect]
     Indication: CHRONIC LYMPHOCYTIC LEUKAEMIA
     Dosage: 25MG/M2 IV DAYS 1-3 Q 4WKS X 6 MOS IV
     Route: 042
     Dates: start: 20060928
  3. FLUDARABINE PHOSPHATE [Suspect]
     Indication: CHRONIC LYMPHOCYTIC LEUKAEMIA
     Dosage: 25MG/M2 IV DAYS 1-3 Q 4WKS X 6 MOS IV
     Route: 042
     Dates: start: 20060929
  4. CYTOXAN [Suspect]
     Indication: CHRONIC LYMPHOCYTIC LEUKAEMIA
     Dosage: 250MG/M2 IV DAYS 1-3 Q4WKS X 6MOS IV
     Route: 042
     Dates: start: 20060927
  5. CYTOXAN [Suspect]
     Indication: CHRONIC LYMPHOCYTIC LEUKAEMIA
     Dosage: 250MG/M2 IV DAYS 1-3 Q4WKS X 6MOS IV
     Route: 042
     Dates: start: 20060928
  6. CYTOXAN [Suspect]
     Indication: CHRONIC LYMPHOCYTIC LEUKAEMIA
     Dosage: 250MG/M2 IV DAYS 1-3 Q4WKS X 6MOS IV
     Route: 042
     Dates: start: 20060929

REACTIONS (1)
  - URINARY RETENTION [None]
